FAERS Safety Report 8403584-1 (Version None)
Quarter: 2012Q2

REPORT INFORMATION
  Report Type: 
  Country: None (occurrence: None)
  Receive Date: 20120601
  Receipt Date: 20120524
  Transmission Date: 20120825
  Serious: Yes (Hospitalization)
  Sender: FDA-Public Use
  Company Number: US-JNJFOC-20111209051

PATIENT
  Sex: Female
  Weight: 42 kg

DRUGS (10)
  1. AMITRIPTYLINE HCL [Concomitant]
  2. FOLIC ACID [Concomitant]
  3. ZOFRAN [Concomitant]
  4. REMICADE [Suspect]
     Indication: INFLAMMATORY BOWEL DISEASE
     Route: 042
  5. CHOLECALCIFEROL [Concomitant]
  6. MERCAPTOPURINE [Concomitant]
  7. HUMIRA [Concomitant]
     Dates: start: 20110827
  8. ANTIBIOTICS [Concomitant]
     Indication: INFLAMMATORY BOWEL DISEASE
  9. NEXIUM [Concomitant]
  10. TYLENOL W/ CODEINE [Concomitant]

REACTIONS (1)
  - CROHN'S DISEASE [None]
